FAERS Safety Report 6214121-4 (Version None)
Quarter: 2009Q2

REPORT INFORMATION
  Report Type: 
  Country: None (occurrence: None)
  Receive Date: 20090604
  Receipt Date: 20090528
  Transmission Date: 20091009
  Serious: Yes (Other)
  Sender: FDA-Public Use
  Company Number: US-BIOGENIDEC-2007BI017737

PATIENT
  Age: 60 Year
  Sex: Female
  Weight: 68 kg

DRUGS (5)
  1. TYSABRI [Suspect]
     Indication: MULTIPLE SCLEROSIS
     Route: 042
     Dates: start: 20070608, end: 20070803
  2. SYNTHROID [Concomitant]
     Indication: HYPOTHYROIDISM
  3. DITROPAN [Concomitant]
  4. MOTRIN [Concomitant]
  5. VITAMIN B COMPLEX CAP [Concomitant]

REACTIONS (2)
  - BREAST CANCER [None]
  - CHRONIC LYMPHOCYTIC LEUKAEMIA [None]
